FAERS Safety Report 17236013 (Version 1)
Quarter: 2020Q1

REPORT INFORMATION
  Report Type: Spontaneous
  Country: NL (occurrence: NL)
  Receive Date: 20200106
  Receipt Date: 20200106
  Transmission Date: 20200409
  Serious: Yes (Hospitalization)
  Sender: FDA-Public Use
  Company Number: NL-ACCORD-168717

PATIENT
  Age: 49 Year
  Sex: Female
  Weight: 65 kg

DRUGS (5)
  1. CAPECITABINE. [Suspect]
     Active Substance: CAPECITABINE
     Indication: COLON CANCER
     Dosage: COMBINATION OF TABLETS OF 500MG AND TABLETS OF 150MG, 2D1650 MG
     Dates: start: 20191028
  2. METOPROLOL. [Concomitant]
     Active Substance: METOPROLOL
  3. OXALIPLATIN. [Concomitant]
     Active Substance: OXALIPLATIN
  4. PANTOPRAZOLE [Concomitant]
     Active Substance: PANTOPRAZOLE
  5. CAPECITABINE. [Suspect]
     Active Substance: CAPECITABINE
     Indication: COLON CANCER
     Dosage: COMBINATION OF TABLETS OF 500MG AND TABLETS OF 150MG, 2D1650MG,
     Dates: start: 20191028

REACTIONS (1)
  - Mucosal inflammation [Recovered/Resolved]

NARRATIVE: CASE EVENT DATE: 20191101
